FAERS Safety Report 8158018 (Version 2)
Quarter: 2012Q4

REPORT INFORMATION
  Report Type: 
  Country: US (occurrence: US)
  Receive Date: 20110927
  Receipt Date: 20121005
  Transmission Date: 20130627
  Serious: No
  Sender: FDA-Public Use
  Company Number: US-BRISTOL-MYERS SQUIBB COMPANY-15778269

PATIENT
  Age: 44 Year
  Sex: Female

DRUGS (1)
  1. AVAPRO TABS 150 MG [Suspect]
     Dosage: on Monday
     Dates: start: 20110523

REACTIONS (3)
  - Nausea [Recovering/Resolving]
  - Vomiting [Recovering/Resolving]
  - Hypertension [Recovering/Resolving]
